FAERS Safety Report 5576968-7 (Version None)
Quarter: 2007Q4

REPORT INFORMATION
  Report Type: 
  Country: None (occurrence: None)
  Receive Date: 20071228
  Receipt Date: 20071225
  Transmission Date: 20080405
  Serious: Yes (Hospitalization)
  Sender: FDA-Public Use
  Company Number: JP-AVENTIS-200713344JP

PATIENT
  Age: 30 Year
  Sex: Female

DRUGS (2)
  1. LANTUS [Suspect]
     Indication: DIABETES MELLITUS
     Route: 058
  2. HUMALOG [Suspect]
     Indication: DIABETES MELLITUS
     Route: 051

REACTIONS (7)
  - ACTIVITIES OF DAILY LIVING IMPAIRED [None]
  - COGNITIVE DISORDER [None]
  - COMA [None]
  - HYPOGLYCAEMIC ENCEPHALOPATHY [None]
  - INTENTIONAL OVERDOSE [None]
  - REGRESSIVE BEHAVIOUR [None]
  - RETROGRADE AMNESIA [None]
